FAERS Safety Report 6268669-7 (Version None)
Quarter: 2009Q3

REPORT INFORMATION
  Report Type: 
  Country: None (occurrence: None)
  Receive Date: 20090713
  Receipt Date: 20090713
  Transmission Date: 20100115
  Serious: Yes (Other)
  Sender: FDA-Public Use
  Company Number: None

PATIENT
  Age: 53 Year
  Sex: Female
  Weight: 65.7716 kg

DRUGS (1)
  1. SINGULAIR [Suspect]
     Dosage: ONE TABLET DAILY PO
     Route: 048
     Dates: start: 20090103, end: 20090708

REACTIONS (5)
  - ANXIETY [None]
  - DECREASED APPETITE [None]
  - DEPRESSION [None]
  - IRRITABILITY [None]
  - RASH [None]
